FAERS Safety Report 7335828-1 (Version None)
Quarter: 2011Q1

REPORT INFORMATION
  Report Type: 
  Country: None (occurrence: None)
  Receive Date: 20110302
  Receipt Date: 20110302
  Transmission Date: 20110831
  Serious: Yes (Other)
  Sender: FDA-Public Use
  Company Number: None

PATIENT
  Age: 40 Year
  Sex: Female
  Weight: 52.1637 kg

DRUGS (1)
  1. TERBINAFINE HYDROCHLORIDE [Suspect]
     Indication: ONYCHOMYCOSIS
     Dosage: 250 MG 1/DAY PO
     Route: 048
     Dates: start: 20110107, end: 20110218

REACTIONS (4)
  - DYSGEUSIA [None]
  - NAUSEA [None]
  - DECREASED APPETITE [None]
  - AGEUSIA [None]
